FAERS Safety Report 7764444-2 (Version None)
Quarter: 2011Q3

REPORT INFORMATION
  Report Type: 
  Country: None (occurrence: None)
  Receive Date: 20110919
  Receipt Date: 20110906
  Transmission Date: 20111222
  Serious: Yes (Other)
  Sender: FDA-Public Use
  Company Number: 1000023787

PATIENT
  Sex: Male

DRUGS (3)
  1. MEMANTINE HCL [Suspect]
     Dosage: 20 MG (20 MG,1 IN 1 D),ORAL
     Route: 048
  2. MEMANTINE HYDROCHLORIDE [Suspect]
     Dosage: UP-TITRATION,ORAL
     Route: 048
  3. ANTIPSYCHOTICS (ANTIPSYCHOTICS) (ANTIPSYCHOTICS) [Concomitant]

REACTIONS (2)
  - CONSTIPATION [None]
  - FAECALOMA [None]
